FAERS Safety Report 17068333 (Version 3)
Quarter: 2023Q4

REPORT INFORMATION
  Report Type: Spontaneous
  Country: DE (occurrence: DE)
  Receive Date: 20191123
  Receipt Date: 20231111
  Transmission Date: 20240109
  Serious: Yes (Hospitalization, Other)
  Sender: FDA-Public Use
  Company Number: DE-EMA-DD-20191105-AGRAHARI-P-110122

PATIENT
  Age: 32 Year
  Sex: Male

DRUGS (8)
  1. PREGABALIN [Suspect]
     Active Substance: PREGABALIN
     Indication: Product used for unknown indication
     Dosage: 300 MG, QD
     Route: 065
     Dates: start: 201706
  2. VENLAFAXINE [Suspect]
     Active Substance: VENLAFAXINE HYDROCHLORIDE
     Indication: Product used for unknown indication
     Route: 065
     Dates: start: 201706
  3. TIZANIDINE [Suspect]
     Active Substance: TIZANIDINE
     Indication: Product used for unknown indication
     Dosage: 12 MG, QD
     Route: 065
  4. DOXEPIN [Suspect]
     Active Substance: DOXEPIN
     Indication: Antidepressant therapy
     Dosage: 100 MG, QD
     Route: 065
  5. DOXEPIN [Suspect]
     Active Substance: DOXEPIN
     Route: 065
  6. LITHIUM CARBONATE [Suspect]
     Active Substance: LITHIUM CARBONATE
     Indication: Product used for unknown indication
     Dosage: 1125 MG, QD
     Route: 065
     Dates: start: 201706
  7. LITHIUM CARBONATE [Suspect]
     Active Substance: LITHIUM CARBONATE
     Dosage: 900 MG, QD
     Route: 065
  8. LITHIUM CARBONATE [Suspect]
     Active Substance: LITHIUM CARBONATE
     Dosage: 1125 MG, QD
     Route: 065
     Dates: start: 201601, end: 201608

REACTIONS (14)
  - Nephrotic syndrome [Recovered/Resolved]
  - Pleural effusion [Unknown]
  - Kidney enlargement [Unknown]
  - Dyspnoea [Unknown]
  - Oedema [Recovered/Resolved]
  - Pain [Unknown]
  - Persistent depressive disorder [Unknown]
  - Weight increased [Unknown]
  - Drug ineffective [Unknown]
  - Haematuria [Recovered/Resolved]
  - Protein S decreased [Recovered/Resolved]
  - Disease recurrence [Recovered/Resolved]
  - Albuminuria [Recovered/Resolved]
  - Hypoalbuminaemia [Recovered/Resolved]

NARRATIVE: CASE EVENT DATE: 20160830
